FAERS Safety Report 4280722-6 (Version None)
Quarter: 2004Q1

REPORT INFORMATION
  Report Type: 
  Country: None (occurrence: None)
  Receive Date: 20040129
  Receipt Date: 20031029
  Transmission Date: 20041129
  Serious: No
  Sender: FDA-Public Use
  Company Number: US-BRISTOL-MYERS SQUIBB COMPANY-12421608

PATIENT
  Age: 63 Year
  Sex: Female
  Weight: 74 kg

DRUGS (3)
  1. METAGLIP [Suspect]
     Indication: DIABETES MELLITUS
     Dosage: LIST # FOR 2.5MG/500MG IS 6077-90 GE00
     Route: 048
  2. TIAZAC [Concomitant]
  3. ACCURETIC [Concomitant]

REACTIONS (2)
  - BLOOD GLUCOSE DECREASED [None]
  - BLOOD GLUCOSE INCREASED [None]
